FAERS Safety Report 10382952 (Version 1)
Quarter: 2014Q3

REPORT INFORMATION
  Report Type: Spontaneous
  Country: US (occurrence: US)
  Receive Date: 20140813
  Receipt Date: 20140813
  Transmission Date: 20150326
  Serious: No
  Sender: FDA-Public Use
  Company Number: US-SA-2014SA060207

PATIENT
  Age: 35 Year
  Sex: Male

DRUGS (3)
  1. FABRAZYME [Suspect]
     Active Substance: AGALSIDASE BETA
     Indication: FABRY^S DISEASE
     Dosage: TWO 35 MG VIALS LOT E3018Y04, EXP 01-JUN-2016; TWO 5 MG VIALS LOT E3019Y01 EXP AUG-2016
     Route: 042
  2. TYLENOL [Concomitant]
     Active Substance: ACETAMINOPHEN
  3. FABRAZYME [Suspect]
     Active Substance: AGALSIDASE BETA
     Indication: FABRY^S DISEASE
     Dosage: TWO 35 MG VIALS LOT E3018Y04, EXP 01-JUN-2016; TWO 5 MG VIALS LOT E3019Y01 EXP AUG-2016
     Route: 042

REACTIONS (1)
  - Infusion site extravasation [Not Recovered/Not Resolved]

NARRATIVE: CASE EVENT DATE: 20140502
